FAERS Safety Report 6550267-9 (Version None)
Quarter: 2010Q1

REPORT INFORMATION
  Report Type: 
  Country: None (occurrence: None)
  Receive Date: 20100125
  Receipt Date: 20100118
  Transmission Date: 20100710
  Serious: Yes (Hospitalization, Other)
  Sender: FDA-Public Use
  Company Number: BE-TEVA-221275ISR

PATIENT
  Age: 48 Year
  Sex: Female

DRUGS (2)
  1. TRAZODONE [Suspect]
  2. VENLAFAXINE [Suspect]

REACTIONS (1)
  - ACUTE HEPATIC FAILURE [None]
